FAERS Safety Report 6321051-6 (Version None)
Quarter: 2009Q3

REPORT INFORMATION
  Report Type: 
  Country: None (occurrence: None)
  Receive Date: 20090822
  Receipt Date: 20081226
  Transmission Date: 20100115
  Serious: No
  Sender: FDA-Public Use
  Company Number: US-ABBOTT-08P-163-0494864-00

PATIENT
  Age: 68 Year
  Sex: Female
  Weight: 68.1 kg

DRUGS (2)
  1. NIASPAN [Suspect]
     Indication: BLOOD CHOLESTEROL INCREASED
     Dates: start: 20081101, end: 20081101
  2. NIASPAN [Suspect]
     Dates: start: 20081101

REACTIONS (3)
  - ABDOMINAL PAIN [None]
  - HAEMATOCHEZIA [None]
  - PRURITUS [None]
